FAERS Safety Report 15420660 (Version 1)
Quarter: 2018Q3

REPORT INFORMATION
  Report Type: Spontaneous
  Country: US (occurrence: US)
  Receive Date: 20180924
  Receipt Date: 20180924
  Transmission Date: 20181010
  Serious: No
  Sender: FDA-Public Use
  Company Number: US-ALLERGAN-1815924US

PATIENT
  Age: 84 Year
  Sex: Female

DRUGS (1)
  1. LINZESS [Suspect]
     Active Substance: LINACLOTIDE
     Indication: CONSTIPATION
     Dosage: 145 ?G, QAM
     Route: 048
     Dates: start: 20180324

REACTIONS (8)
  - Wrong technique in product usage process [Unknown]
  - Drug ineffective [Unknown]
  - Incorrect dose administered [Unknown]
  - Diarrhoea [Unknown]
  - Abdominal distension [Unknown]
  - Faeces discoloured [Unknown]
  - Muscle spasms [Unknown]
  - Dyschezia [Unknown]

NARRATIVE: CASE EVENT DATE: 20180324
